FAERS Safety Report 4893719-X (Version None)
Quarter: 2006Q1

REPORT INFORMATION
  Report Type: 
  Country: None (occurrence: None)
  Receive Date: 20060127
  Receipt Date: 20051205
  Transmission Date: 20060701
  Serious: Yes (Death)
  Sender: FDA-Public Use
  Company Number: RU-GLAXOSMITHKLINE-B0403208A

PATIENT
  Age: 2 Year
  Sex: Male
  Weight: 2.8 kg

DRUGS (7)
  1. SERETIDE [Suspect]
     Route: 055
     Dates: start: 20030101
  2. PULMICORT [Concomitant]
     Route: 055
  3. PREDNISOLONE [Concomitant]
  4. VENTOLIN [Concomitant]
     Route: 055
  5. FLIXOTIDE [Concomitant]
     Route: 055
  6. EUPHYLLIN [Concomitant]
  7. ANTIHISTAMINES [Concomitant]

REACTIONS (3)
  - BRAIN OEDEMA [None]
  - DEATH [None]
  - MYOCARDIAL OEDEMA [None]
